FAERS Safety Report 19358423 (Version 2)
Quarter: 2025Q1

REPORT INFORMATION
  Report Type: Spontaneous
  Country: IT (occurrence: IT)
  Receive Date: 20210602
  Receipt Date: 20250326
  Transmission Date: 20250409
  Serious: No
  Sender: ALKEM
  Company Number: IT-ALKEM LABORATORIES LIMITED-IT-ALKEM-2021-02009

PATIENT
  Age: 65 Year
  Sex: Female

DRUGS (2)
  1. COLCHICINE [Interacting]
     Active Substance: COLCHICINE
     Indication: Gout
     Dosage: 1.5 MILLIGRAM, QD
     Route: 065
  2. PRAVASTATIN [Interacting]
     Active Substance: PRAVASTATIN
     Indication: Product used for unknown indication
     Dosage: 20 MILLIGRAM, QD (FOR 6 YEARS)
     Route: 065

REACTIONS (3)
  - Toxicity to various agents [Unknown]
  - Myopathy [Unknown]
  - Drug interaction [Unknown]
